FAERS Safety Report 6757799-9 (Version None)
Quarter: 2010Q2

REPORT INFORMATION
  Report Type: 
  Country: None (occurrence: None)
  Receive Date: 20100604
  Receipt Date: 20100604
  Transmission Date: 20101027
  Serious: Yes (Other)
  Sender: FDA-Public Use
  Company Number: None

PATIENT
  Age: 59 Year
  Sex: Male
  Weight: 86.1834 kg

DRUGS (7)
  1. PRISTIQ [Suspect]
     Indication: DEPRESSION
     Dosage: 50 MG DAILY PO
     Route: 048
     Dates: start: 20090202, end: 20100528
  2. NEXIUM [Concomitant]
  3. METFORMIN [Concomitant]
  4. LIPITOR [Concomitant]
  5. LIPIDIL [Concomitant]
  6. LIPIDEEZ [Concomitant]
  7. ASPIRIN [Concomitant]

REACTIONS (14)
  - AMNESIA [None]
  - BALANCE DISORDER [None]
  - DISORIENTATION [None]
  - DRY MOUTH [None]
  - DYSPNOEA [None]
  - FALL [None]
  - HALLUCINATION, VISUAL [None]
  - HEADACHE [None]
  - HYPERHIDROSIS [None]
  - INSOMNIA [None]
  - LOSS OF LIBIDO [None]
  - TINNITUS [None]
  - VISION BLURRED [None]
  - WEIGHT DECREASED [None]
